FAERS Safety Report 17644448 (Version 3)
Quarter: 2020Q3

REPORT INFORMATION
  Report Type: Report from Study
  Country: BR (occurrence: BR)
  Receive Date: 20200408
  Receipt Date: 20200706
  Transmission Date: 20201102
  Serious: Yes (Hospitalization, Other)
  Sender: FDA-Public Use
  Company Number: BR-VIIV HEALTHCARE LIMITED-BR2020GSK059765

PATIENT
  Age: 25 Year
  Sex: Male
  Weight: 72 kg

DRUGS (8)
  1. BLINDED CABOTEGRAVIR [Suspect]
     Active Substance: CABOTEGRAVIR
     Dosage: UNK
     Route: 030
     Dates: start: 20191120, end: 20200211
  2. BLINDED EMTRICITABINE [Suspect]
     Active Substance: EMTRICITABINE
     Indication: PROPHYLAXIS AGAINST HIV INFECTION
     Dosage: UNK
     Route: 048
     Dates: start: 20191017, end: 20200312
  3. BLINDED TENOFOVIR DISOPROXIL FUMARATE [Suspect]
     Active Substance: TENOFOVIR DISOPROXIL FUMARATE
     Dosage: UNK
     Route: 030
     Dates: start: 20191120, end: 20200211
  4. BLINDED CABOTEGRAVIR [Suspect]
     Active Substance: CABOTEGRAVIR
     Indication: PROPHYLAXIS AGAINST HIV INFECTION
     Dosage: UNK
     Route: 048
     Dates: start: 20191017, end: 20200312
  5. PLACEBO [Suspect]
     Active Substance: UNSPECIFIED INGREDIENT
     Indication: PROPHYLAXIS AGAINST HIV INFECTION
     Dosage: UNK
     Route: 048
     Dates: start: 20191017, end: 20200312
  6. BLINDED EMTRICITABINE [Suspect]
     Active Substance: EMTRICITABINE
     Dosage: UNK
     Route: 030
     Dates: start: 20191120, end: 20200211
  7. BLINDED TENOFOVIR DISOPROXIL FUMARATE [Suspect]
     Active Substance: TENOFOVIR DISOPROXIL FUMARATE
     Indication: PROPHYLAXIS AGAINST HIV INFECTION
     Dosage: UNK
     Route: 048
     Dates: start: 20191017, end: 20200312
  8. PLACEBO [Suspect]
     Active Substance: UNSPECIFIED INGREDIENT
     Dosage: UNK
     Route: 030
     Dates: start: 20191120, end: 20200211

REACTIONS (1)
  - Seizure [Recovered/Resolved]

NARRATIVE: CASE EVENT DATE: 20200313
